FAERS Safety Report 5479689-4 (Version None)
Quarter: 2007Q4

REPORT INFORMATION
  Report Type: 
  Country: None (occurrence: None)
  Receive Date: 20071008
  Receipt Date: 20071004
  Transmission Date: 20080405
  Serious: Yes (Other)
  Sender: FDA-Public Use
  Company Number: B0490164A

PATIENT
  Age: 3 Year
  Sex: Female

DRUGS (1)
  1. AUGMENTIN '125' [Suspect]
     Indication: PHARYNGITIS
     Dosage: 4.5ML PER DAY
     Route: 048
     Dates: start: 20070623, end: 20070625

REACTIONS (1)
  - URINARY RETENTION [None]
